FAERS Safety Report 25638363 (Version 1)
Quarter: 2025Q3

REPORT INFORMATION
  Report Type: Spontaneous
  Country: US (occurrence: US)
  Receive Date: 20250804
  Receipt Date: 20250804
  Transmission Date: 20251020
  Serious: No
  Sender: CHIESI
  Company Number: US-CHIESI-2025CHF01712

PATIENT
  Age: 40 Year
  Sex: Male

DRUGS (4)
  1. KENGREAL [Suspect]
     Active Substance: CANGRELOR
     Indication: Product used for unknown indication
     Dosage: UNK, Q2H
     Route: 065
  2. KENGREAL [Suspect]
     Active Substance: CANGRELOR
     Dosage: UNK UNK, Q12H
     Route: 065
  3. ALTEPLASE [Concomitant]
     Active Substance: ALTEPLASE
     Indication: Product used for unknown indication
  4. HEPARIN [Concomitant]
     Active Substance: HEPARIN SODIUM
     Indication: Product used for unknown indication

REACTIONS (4)
  - Off label use [Unknown]
  - Off label use [Unknown]
  - Off label use [Unknown]
  - No adverse event [Recovered/Resolved]
